FAERS Safety Report 12157638 (Version 1)
Quarter: 2016Q1

REPORT INFORMATION
  Report Type: Spontaneous
  Country: US (occurrence: None)
  Receive Date: 20160307
  Receipt Date: 20160307
  Transmission Date: 20160526
  Serious: Yes (Life-Threatening)
  Sender: FDA-Public Use
  Company Number: None

PATIENT
  Age: 15 Year
  Sex: Female
  Weight: 72.58 kg

DRUGS (1)
  1. MONTELUKAST [Suspect]
     Active Substance: MONTELUKAST SODIUM
     Indication: SEASONAL ALLERGY
     Dosage: 1 PILL ONCE DAILY TAKEN BY MOUTH
     Route: 048
     Dates: start: 20060301, end: 20160215

REACTIONS (8)
  - Suicidal ideation [None]
  - Mood altered [None]
  - Irritability [None]
  - Personality change [None]
  - Depression [None]
  - Increased tendency to bruise [None]
  - Anxiety [None]
  - Arthralgia [None]

NARRATIVE: CASE EVENT DATE: 20160215
